FAERS Safety Report 4758635-2 (Version None)
Quarter: 2005Q3

REPORT INFORMATION
  Report Type: 
  Country: None (occurrence: None)
  Receive Date: 20050829
  Receipt Date: 20050819
  Transmission Date: 20060218
  Serious: Yes (Other)
  Sender: FDA-Public Use
  Company Number: CHPA2005US02029

PATIENT
  Age: 58 Year
  Sex: Female
  Weight: 46.7 kg

DRUGS (5)
  1. NICOTINE [Suspect]
     Indication: SMOKING CESSATION THERAPY
     Dosage: 21 MG, QD, TRANSDERMAL
     Route: 062
     Dates: start: 20050801, end: 20050804
  2. WELLBUTRIN [Concomitant]
  3. METHADONE HCL [Concomitant]
  4. VICODIN [Concomitant]
  5. ANTACIDS (NO INGREDIENTS/SUBSTANCES) [Concomitant]

REACTIONS (8)
  - APPLICATION SITE ERYTHEMA [None]
  - APPLICATION SITE IRRITATION [None]
  - APPLICATION SITE SWELLING [None]
  - CRYING [None]
  - DEPRESSION [None]
  - DRUG WITHDRAWAL SYNDROME [None]
  - EMOTIONAL DISORDER [None]
  - SUICIDAL IDEATION [None]
